FAERS Safety Report 5464049-2 (Version None)
Quarter: 2007Q3

REPORT INFORMATION
  Report Type: 
  Country: None (occurrence: None)
  Receive Date: 20070921
  Receipt Date: 20070912
  Transmission Date: 20080115
  Serious: Yes (Hospitalization)
  Sender: FDA-Public Use
  Company Number: JP-JNJFOC-20070900442

PATIENT
  Sex: Male
  Weight: 75 kg

DRUGS (3)
  1. PALIPERIDONE [Suspect]
     Indication: SCHIZOPHRENIA
  2. ESTAZOLAM [Concomitant]
     Indication: SCHIZOPHRENIA
  3. ROHYPNOL [Concomitant]
     Indication: SCHIZOPHRENIA

REACTIONS (1)
  - THIRST [None]
